FAERS Safety Report 11055449 (Version 1)
Quarter: 2015Q2

REPORT INFORMATION
  Report Type: Spontaneous
  Country: US (occurrence: None)
  Receive Date: 20150421
  Receipt Date: 20150421
  Transmission Date: 20150821
  Serious: No
  Sender: FDA-Public Use
  Company Number: None

PATIENT
  Age: 57 Year
  Sex: Female

DRUGS (1)
  1. RISPERDAL CONSTA [Suspect]
     Active Substance: RISPERIDONE
     Dosage: 37.5MG, Q W WKS, DELTOID?
     Dates: start: 20150402

REACTIONS (2)
  - Incorrect dose administered [None]
  - Device malfunction [None]

NARRATIVE: CASE EVENT DATE: 20150402
